FAERS Safety Report 6125003-0 (Version None)
Quarter: 2009Q1

REPORT INFORMATION
  Report Type: 
  Country: None (occurrence: None)
  Receive Date: 20090319
  Receipt Date: 20090310
  Transmission Date: 20090719
  Serious: Yes (Other)
  Sender: FDA-Public Use
  Company Number: US-PFIZER INC-2009163462

PATIENT
  Sex: Female
  Weight: 47.619 kg

DRUGS (4)
  1. LYRICA [Suspect]
     Indication: FIBROMYALGIA
     Dates: start: 20071101, end: 20090101
  2. XANAX [Concomitant]
     Indication: ANXIETY
     Dosage: UNK
  3. SOMA [Concomitant]
     Indication: BACK DISORDER
     Dosage: UNK
  4. MAXALT [Concomitant]
     Indication: HEADACHE
     Dosage: UNK

REACTIONS (8)
  - ASTHENIA [None]
  - DIARRHOEA [None]
  - DIZZINESS [None]
  - FALL [None]
  - INTERVERTEBRAL DISC PROTRUSION [None]
  - MUSCLE SPASMS [None]
  - TREMOR [None]
  - WEIGHT DECREASED [None]
